FAERS Safety Report 4318399-3 (Version None)
Quarter: 2004Q1

REPORT INFORMATION
  Report Type: 
  Country: None (occurrence: None)
  Receive Date: 20040315
  Receipt Date: 20040303
  Transmission Date: 20041129
  Serious: Yes (Hospitalization)
  Sender: FDA-Public Use
  Company Number: CH-JNJFOC-20040301156

PATIENT
  Age: 78 Year
  Sex: Male

DRUGS (6)
  1. REMINYL [Suspect]
     Indication: DRUG USE FOR UNKNOWN INDICATION
     Dosage: 8 MG, 1 IN 1 TOTAL, ORAL
     Route: 048
     Dates: start: 20031201, end: 20031202
  2. BECOZYM (BECOZYM) [Concomitant]
  3. BENERVA (THIAMINE HYDROCHLORIDE) [Concomitant]
  4. BETOLVEX (CYANOCOBALAMIN-TANNIN COMPLEX) INJECTION [Concomitant]
  5. LASIX [Concomitant]
  6. ZYRTEC [Concomitant]

REACTIONS (7)
  - CONDITION AGGRAVATED [None]
  - DEHYDRATION [None]
  - ERYTHEMA [None]
  - EXANTHEM [None]
  - EYELID OEDEMA [None]
  - SKIN DISORDER [None]
  - STASIS DERMATITIS [None]
